FAERS Safety Report 24279409 (Version 1)
Quarter: 2024Q3

REPORT INFORMATION
  Report Type: Spontaneous
  Country: PT (occurrence: PT)
  Receive Date: 20240903
  Receipt Date: 20240903
  Transmission Date: 20241016
  Serious: Yes (Hospitalization, Other)
  Sender: SANDOZ
  Company Number: None

PATIENT
  Age: 79 Year
  Sex: Female

DRUGS (3)
  1. AZITHROMYCIN [Suspect]
     Active Substance: AZITHROMYCIN
     Indication: Cough
     Dosage: UNK
     Route: 065
  2. AZITHROMYCIN [Suspect]
     Active Substance: AZITHROMYCIN
     Indication: Rhinorrhoea
  3. APIXABAN [Suspect]
     Active Substance: APIXABAN
     Indication: Pulmonary embolism
     Dosage: UNK
     Route: 065

REACTIONS (8)
  - Melaena [Recovering/Resolving]
  - Thrombocytopenia [Recovered/Resolved]
  - Gingival bleeding [Recovering/Resolving]
  - Gingival oedema [Recovering/Resolving]
  - Petechiae [Recovering/Resolving]
  - Skin lesion [Unknown]
  - Blister [Recovering/Resolving]
  - Ecchymosis [Recovering/Resolving]
